FAERS Safety Report 6484091-2 (Version None)
Quarter: 2009Q4

REPORT INFORMATION
  Report Type: 
  Country: None (occurrence: None)
  Receive Date: 20091209
  Receipt Date: 20090519
  Transmission Date: 20100525
  Serious: No
  Sender: FDA-Public Use
  Company Number: US-AMGEN-KDL347839

PATIENT
  Sex: Female

DRUGS (2)
  1. ENBREL [Suspect]
     Indication: RHEUMATOID ARTHRITIS
     Dates: start: 20081217
  2. SULFASALAZINE [Concomitant]

REACTIONS (2)
  - ORAL SURGERY [None]
  - RHEUMATOID ARTHRITIS [None]
